FAERS Safety Report 9468267 (Version 1)
Quarter: 2013Q3

REPORT INFORMATION
  Report Type: Spontaneous
  Country: US (occurrence: US)
  Receive Date: 20130821
  Receipt Date: 20130821
  Transmission Date: 20140515
  Serious: No
  Sender: FDA-Public Use
  Company Number: US-PFIZER INC-2013241006

PATIENT
  Age: 81 Year
  Sex: Female
  Weight: 43.08 kg

DRUGS (4)
  1. DILANTIN [Suspect]
     Indication: CONVULSION
     Dosage: 30 MG, 2X/DAY
  2. DILANTIN [Suspect]
     Dosage: 30 MG, 1X/DAY
  3. KEPPRA [Concomitant]
     Dosage: UNK
  4. SYNTHROID [Concomitant]
     Indication: THYROID DISORDER
     Dosage: UNK

REACTIONS (2)
  - Asthenia [Unknown]
  - Circumstance or information capable of leading to medication error [Unknown]
